FAERS Safety Report 4891376-X (Version None)
Quarter: 2006Q1

REPORT INFORMATION
  Report Type: 
  Country: None (occurrence: None)
  Receive Date: 20060125
  Receipt Date: 20051201
  Transmission Date: 20060701
  Serious: Yes (Other)
  Sender: FDA-Public Use
  Company Number: US-AVENTIS-200520806US

PATIENT
  Age: 38 Year
  Sex: Female

DRUGS (2)
  1. LANTUS [Suspect]
     Indication: DIABETES MELLITUS NON-INSULIN-DEPENDENT
     Dosage: DOSE: 30-35; DOSE UNIT: UNITS
  2. NOVOLOG [Concomitant]
     Dosage: DOSE: 10-15; DOSE UNIT: UNITS

REACTIONS (6)
  - ABORTION SPONTANEOUS [None]
  - CONTRAINDICATION TO MEDICAL TREATMENT [None]
  - DIABETES MELLITUS INADEQUATE CONTROL [None]
  - DRUG EXPOSURE DURING PREGNANCY [None]
  - GLYCOSYLATED HAEMOGLOBIN INCREASED [None]
  - MEDICATION ERROR [None]
